FAERS Safety Report 6935233-3 (Version None)
Quarter: 2010Q3

REPORT INFORMATION
  Report Type: 
  Country: None (occurrence: None)
  Receive Date: 20100822
  Receipt Date: 20100512
  Transmission Date: 20110219
  Serious: No
  Sender: FDA-Public Use
  Company Number: US-ALLERGAN-1006109US

PATIENT
  Age: 82 Year
  Sex: Female

DRUGS (4)
  1. COMBIGAN [Suspect]
     Indication: INTRAOCULAR PRESSURE INCREASED
     Dosage: 1 GTT, QD
     Route: 047
  2. LOTENSIN [Concomitant]
     Indication: HYPERTENSION
  3. TRAVATAN [Concomitant]
  4. DIURETIC [Concomitant]

REACTIONS (6)
  - DRY EYE [None]
  - DRY MOUTH [None]
  - DYSGEUSIA [None]
  - FEELING ABNORMAL [None]
  - HEART RATE INCREASED [None]
  - SINUS DISORDER [None]
